FAERS Safety Report 6763695-3 (Version None)
Quarter: 2010Q2

REPORT INFORMATION
  Report Type: 
  Country: None (occurrence: None)
  Receive Date: 20100610
  Receipt Date: 20100531
  Transmission Date: 20101027
  Serious: Yes (Death, Hospitalization, Other)
  Sender: FDA-Public Use
  Company Number: US-TEVA-236571USA

PATIENT
  Age: 50 Year
  Sex: Male

DRUGS (4)
  1. MERCAPTOPURINE [Suspect]
     Dosage: 100 MG/DAY
  2. ADALIMUMAB [Suspect]
     Dosage: 40 MG EVERY 2 WEEKS
  3. MESALAZINE [Concomitant]
  4. HYOSCYAMINE [Concomitant]

REACTIONS (1)
  - COCCIDIOIDOMYCOSIS [None]
